FAERS Safety Report 17911712 (Version 1)
Quarter: 2020Q2

REPORT INFORMATION
  Report Type: Spontaneous
  Country: US (occurrence: US)
  Receive Date: 20200618
  Receipt Date: 20200618
  Transmission Date: 20200714
  Serious: Yes (Hospitalization)
  Sender: FDA-Public Use
  Company Number: None

PATIENT
  Age: 43 Year
  Sex: Female
  Weight: 87.8 kg

DRUGS (3)
  1. METHOTREXATE. [Suspect]
     Active Substance: METHOTREXATE
     Dates: end: 20200601
  2. ETOPOSIDE (VP-16) [Suspect]
     Active Substance: ETOPOSIDE
     Dates: end: 20200605
  3. CYTARABINE. [Suspect]
     Active Substance: CYTARABINE
     Dates: end: 20200605

REACTIONS (8)
  - Tachycardia [None]
  - Leukopenia [None]
  - Pneumonia bacterial [None]
  - Diarrhoea [None]
  - Pneumonia viral [None]
  - Pyrexia [None]
  - Infection [None]
  - Cells in urine [None]

NARRATIVE: CASE EVENT DATE: 20200616
